FAERS Safety Report 12949842 (Version 1)
Quarter: 2016Q4

REPORT INFORMATION
  Report Type: Spontaneous
  Country: US (occurrence: US)
  Receive Date: 20161117
  Receipt Date: 20161117
  Transmission Date: 20170207
  Serious: Yes (Hospitalization, Other)
  Sender: FDA-Public Use
  Company Number: US-ASTELLAS-2016US044819

PATIENT
  Sex: Male

DRUGS (2)
  1. MINOXIDIL. [Concomitant]
     Active Substance: MINOXIDIL
     Indication: PRODUCT USED FOR UNKNOWN INDICATION
     Dosage: UNK UNK, UNKNOWN FREQ.
     Route: 065
  2. PROGRAF [Suspect]
     Active Substance: TACROLIMUS\TACROLIMUS ANHYDROUS
     Indication: COMPLICATIONS OF TRANSPLANTED KIDNEY
     Route: 048

REACTIONS (4)
  - Off label use [Unknown]
  - Scrotal swelling [Not Recovered/Not Resolved]
  - Necrosis [Unknown]
  - Haematoma [Unknown]

NARRATIVE: CASE EVENT DATE: 2014
